FAERS Safety Report 4557711-7 (Version None)
Quarter: 2005Q1

REPORT INFORMATION
  Report Type: 
  Country: None (occurrence: None)
  Receive Date: 20050118
  Receipt Date: 20050101
  Transmission Date: 20050727
  Serious: No
  Sender: FDA-Public Use
  Company Number: 9642

PATIENT
  Sex: Female

DRUGS (3)
  1. METHOTREXATE [Suspect]
  2. ETANERCEPT [Suspect]
     Dates: end: 20041001
  3. TOLTERODINE TARTRATE [Concomitant]

REACTIONS (3)
  - CONDITION AGGRAVATED [None]
  - MACULAR DEGENERATION [None]
  - VISUAL ACUITY REDUCED [None]
